FAERS Safety Report 11849526 (Version 9)
Quarter: 2016Q4

REPORT INFORMATION
  Report Type: Report from Study
  Country: US (occurrence: US)
  Receive Date: 20151218
  Receipt Date: 20161031
  Transmission Date: 20170206
  Serious: Yes (Hospitalization, Other)
  Sender: FDA-Public Use
  Company Number: US-BAYER-2015-476996

PATIENT
  Age: 62 Year
  Sex: Male
  Weight: 79.82 kg

DRUGS (10)
  1. AMLODIPINE [Concomitant]
     Active Substance: AMLODIPINE BESYLATE
     Dosage: UNK
  2. ADEMPAS [Suspect]
     Active Substance: RIOCIGUAT
     Indication: PULMONARY HYPERTENSION
     Dosage: 1 MG, TID
     Route: 048
  3. ADEMPAS [Suspect]
     Active Substance: RIOCIGUAT
     Indication: PULMONARY HYPERTENSION
     Dosage: 3MG TOTAL DAILY DOSE
     Route: 048
     Dates: start: 20151119
  4. ADEMPAS [Suspect]
     Active Substance: RIOCIGUAT
     Indication: PULMONARY HYPERTENSION
     Dosage: UNK
     Dates: start: 20151119
  5. ADEMPAS [Suspect]
     Active Substance: RIOCIGUAT
     Indication: PULMONARY HYPERTENSION
     Dosage: 3MG TOTAL DAILY DOSE
     Route: 048
  6. ADEMPAS [Suspect]
     Active Substance: RIOCIGUAT
     Indication: PULMONARY HYPERTENSION
     Dosage: 0.5 MG, TID (LAST SHIPPED 19-NOV-2015)
     Route: 048
  7. VELETRI [Concomitant]
     Active Substance: EPOPROSTENOL
     Dosage: 13 NG/KG/MIN
  8. ADEMPAS [Suspect]
     Active Substance: RIOCIGUAT
     Indication: PULMONARY HYPERTENSION
     Dosage: 3MG TOTAL DAILY DOSE
     Route: 048
  9. REMODULIN [Concomitant]
     Active Substance: TREPROSTINIL
     Dosage: UNK
  10. ADEMPAS [Suspect]
     Active Substance: RIOCIGUAT
     Indication: PULMONARY HYPERTENSION
     Dosage: 1 MG, TID
     Route: 048

REACTIONS (20)
  - Fluid retention [Unknown]
  - Catheter site haemorrhage [Unknown]
  - Hyperammonaemia [None]
  - Dialysis [None]
  - Confusional state [None]
  - Hospitalisation [Unknown]
  - Dialysis [Unknown]
  - Atrial fibrillation [Unknown]
  - Neck deformity [Unknown]
  - Hernia [Unknown]
  - Hypotension [None]
  - Dyspnoea exertional [Unknown]
  - Catheter site vesicles [Unknown]
  - Hospitalisation [None]
  - Abnormal loss of weight [Unknown]
  - Local swelling [Unknown]
  - Hypotension [Unknown]
  - Pain in jaw [None]
  - Dyspnoea [Unknown]
  - Wrong technique in product usage process [None]

NARRATIVE: CASE EVENT DATE: 201512
